FAERS Safety Report 6168518-1 (Version None)
Quarter: 2009Q2

REPORT INFORMATION
  Report Type: 
  Country: None (occurrence: None)
  Receive Date: 20090427
  Receipt Date: 20090423
  Transmission Date: 20091009
  Serious: Yes (Hospitalization)
  Sender: FDA-Public Use
  Company Number: B0558450A

PATIENT
  Sex: Female

DRUGS (3)
  1. RELENZA [Suspect]
     Indication: INFLUENZA
     Dosage: 10MG TWICE PER DAY
     Route: 055
     Dates: start: 20090117, end: 20090117
  2. UNKNOWN DRUG [Concomitant]
     Dosage: 3G PER DAY
     Route: 048
     Dates: start: 20090117, end: 20090117
  3. LOXONIN [Concomitant]
     Indication: ANTIPYRESIS
     Dosage: 180MG PER DAY
     Route: 048
     Dates: end: 20090117

REACTIONS (3)
  - ANAPHYLACTIC SHOCK [None]
  - DYSPNOEA [None]
  - LARYNGEAL OEDEMA [None]
